FAERS Safety Report 25024522 (Version 3)
Quarter: 2025Q1

REPORT INFORMATION
  Report Type: Spontaneous
  Country: US (occurrence: US)
  Receive Date: 20250228
  Receipt Date: 20250324
  Transmission Date: 20250408
  Serious: Yes (Disabling, Other)
  Sender: PFIZER
  Company Number: US-PFIZER INC-PV202500024433

PATIENT
  Sex: Male
  Weight: 80.726 kg

DRUGS (4)
  1. LINCOCIN [Suspect]
     Active Substance: LINCOMYCIN
     Indication: Oropharyngeal discomfort
  2. CLOBAZAM [Suspect]
     Active Substance: CLOBAZAM
  3. LACOSAMIDE [Suspect]
     Active Substance: LACOSAMIDE
  4. OXCARBAZEPINE [Suspect]
     Active Substance: OXCARBAZEPINE

REACTIONS (2)
  - Epilepsy [Not Recovered/Not Resolved]
  - Drug hypersensitivity [Unknown]
